FAERS Safety Report 19993195 (Version 1)
Quarter: 2021Q4

REPORT INFORMATION
  Report Type: Spontaneous
  Country: DK (occurrence: DK)
  Receive Date: 20211025
  Receipt Date: 20211025
  Transmission Date: 20220303
  Serious: Yes (Hospitalization)
  Sender: FDA-Public Use
  Company Number: None

PATIENT
  Age: 62 Year
  Sex: Male
  Weight: 88 kg

DRUGS (5)
  1. LAMOTRIGINE [Interacting]
     Active Substance: LAMOTRIGINE
     Indication: Pain
     Dosage: 400 MILLIGRAM, QD(STRENGTH: 200 MG)
     Route: 048
     Dates: start: 20141103
  2. VIMPAT [Interacting]
     Active Substance: LACOSAMIDE
     Indication: Epilepsy
     Dosage: 300 MILLIGRAM, QD (STRENGTH: 150 MG)
     Route: 048
     Dates: start: 20200304
  3. VIMPAT [Interacting]
     Active Substance: LACOSAMIDE
     Dosage: 50 MILLIGRAM, QD (STRENGTH:50)
     Route: 048
     Dates: start: 20201008
  4. CLOBAZAM [Interacting]
     Active Substance: CLOBAZAM
     Indication: Epilepsy
     Dosage: 20 MILLIGRAM, QD(STRENGTH: 10 MG)
     Route: 048
     Dates: start: 20190306
  5. LAMOTRIGINE [Interacting]
     Active Substance: LAMOTRIGINE
     Indication: Epilepsy
     Dosage: 50 MILLIGRAM, QD (STRENGTH: 50 MG)
     Route: 048
     Dates: start: 20131117

REACTIONS (7)
  - Thrombocytopenia [Not Recovered/Not Resolved]
  - Drug interaction [Unknown]
  - Thrombosis [Not Recovered/Not Resolved]
  - Stevens-Johnson syndrome [Recovered/Resolved]
  - Petechiae [Recovered/Resolved]
  - Vasculitis [Recovered/Resolved]
  - Erythema multiforme [Recovered/Resolved]

NARRATIVE: CASE EVENT DATE: 20210609
